FAERS Safety Report 7040956-4 (Version None)
Quarter: 2010Q4

REPORT INFORMATION
  Report Type: 
  Country: None (occurrence: None)
  Receive Date: 20101013
  Receipt Date: 20100930
  Transmission Date: 20110411
  Serious: Yes (Congenital Anomaly)
  Sender: FDA-Public Use
  Company Number: FR-SHIRE-SPV1-2010-01623

PATIENT

DRUGS (7)
  1. MIDON [Suspect]
     Indication: ORTHOSTATIC HYPOTENSION
     Dosage: 1 DF, 1X/DAY:QD
     Route: 048
     Dates: start: 20091214, end: 20100127
  2. KALETRA [Suspect]
     Indication: HIV INFECTION
     Dosage: 4 DF, 1X/DAY:QD
     Route: 048
     Dates: start: 20070101
  3. TRUVADA [Suspect]
     Indication: HIV INFECTION
     Dosage: 1 DF, 1X/DAY:QD
     Route: 048
     Dates: start: 20070101, end: 20100127
  4. COMBIVIR [Suspect]
     Indication: HIV INFECTION
     Dosage: 2 DF, 1X/DAY:QD
     Route: 048
     Dates: start: 20100127
  5. ASPEGIC 1000 [Suspect]
     Indication: PRODUCT USED FOR UNKNOWN INDICATION
     Dosage: 100 MG, 1X/DAY:QD
     Route: 065
     Dates: start: 20100319, end: 20100409
  6. LYRICA [Suspect]
     Indication: PAIN
     Dosage: 75 MG, 1X/DAY:QD
     Route: 048
     Dates: start: 20091214, end: 20100127
  7. SPECIAFOLDINE [Concomitant]
     Indication: PRODUCT USED FOR UNKNOWN INDICATION
     Dosage: 10 MG, 1X/DAY:QD
     Route: 065
     Dates: start: 20100127

REACTIONS (4)
  - ABORTION INDUCED [None]
  - CEREBELLAR HYPOPLASIA [None]
  - CONGENITAL HYDROCEPHALUS [None]
  - DRUG EXPOSURE DURING PREGNANCY [None]
